FAERS Safety Report 17082178 (Version 1)
Quarter: 2019Q4

REPORT INFORMATION
  Report Type: Spontaneous
  Country: US (occurrence: US)
  Receive Date: 20191127
  Receipt Date: 20191127
  Transmission Date: 20200122
  Serious: No
  Sender: FDA-Public Use
  Company Number: US-PFIZER INC-2019347858

PATIENT
  Age: 77 Year
  Sex: Male

DRUGS (1)
  1. INLYTA [Suspect]
     Active Substance: AXITINIB
     Indication: RENAL CANCER METASTATIC
     Dosage: 3 DF, 2X/DAY (TAKE 3 TABLETS (3 MG) BY MOUTH EVERY 12 (TWELVE) HOURS))
     Route: 048

REACTIONS (1)
  - Neoplasm progression [Unknown]
